FAERS Safety Report 4483639-7 (Version None)
Quarter: 2004Q4

REPORT INFORMATION
  Report Type: 
  Country: None (occurrence: None)
  Receive Date: 20041014
  Receipt Date: 20041014
  Transmission Date: 20050328
  Serious: Yes (Disabling)
  Sender: FDA-Public Use
  Company Number: None

PATIENT
  Age: 37 Year
  Sex: Male
  Weight: 90.7194 kg

DRUGS (2)
  1. CIPRO XR [Suspect]
     Indication: PROSTATITIS
     Dosage: 1000 MG 1 X DAY
     Dates: start: 20040709
  2. CIPRO [Suspect]
     Indication: PROSTATITIS
     Dosage: 500 MG 1X DAY

REACTIONS (5)
  - BACK PAIN [None]
  - IMPAIRED WORK ABILITY [None]
  - MUSCLE SPASMS [None]
  - PAIN IN EXTREMITY [None]
  - TREMOR [None]
